FAERS Safety Report 9819787 (Version 2)
Quarter: 2014Q1

REPORT INFORMATION
  Report Type: Report from Study
  Country: US (occurrence: US)
  Receive Date: 20140116
  Receipt Date: 20140117
  Transmission Date: 20141002
  Serious: Yes (Hospitalization, Other)
  Sender: FDA-Public Use
  Company Number: US-ROCHE-1330997

PATIENT
  Age: 25 Year
  Sex: Female
  Weight: 55.5 kg

DRUGS (4)
  1. XOLAIR [Suspect]
     Indication: ASTHMA
     Route: 058
  2. PREDNISONE [Concomitant]
     Route: 065
  3. NASONEX [Concomitant]
  4. LEVAQUIN [Concomitant]

REACTIONS (13)
  - Lung operation [Unknown]
  - Condition aggravated [Unknown]
  - Bloody discharge [Unknown]
  - Asthenia [Unknown]
  - Cataract [Unknown]
  - Glaucoma [Unknown]
  - Open angle glaucoma [Unknown]
  - Myopathy [Unknown]
  - Intraocular pressure increased [Unknown]
  - Arthralgia [Unknown]
  - Sinus headache [Unknown]
  - Dyspnoea paroxysmal nocturnal [Unknown]
  - Nasal congestion [Unknown]
